FAERS Safety Report 5633398-7 (Version None)
Quarter: 2008Q1

REPORT INFORMATION
  Report Type: 
  Country: None (occurrence: None)
  Receive Date: 20080221
  Receipt Date: 20070822
  Transmission Date: 20080703
  Serious: No
  Sender: FDA-Public Use
  Company Number: A0674718A

PATIENT
  Sex: Male

DRUGS (2)
  1. ZIAGEN [Suspect]
     Indication: HIV INFECTION
     Dosage: 1TAB PER DAY
     Route: 048
     Dates: start: 20070810, end: 20070820
  2. REYATAZ [Concomitant]

REACTIONS (4)
  - CHILLS [None]
  - COUGH [None]
  - PYREXIA [None]
  - RASH [None]
